FAERS Safety Report 24337999 (Version 1)
Quarter: 2024Q3

REPORT INFORMATION
  Report Type: Spontaneous
  Country: CN (occurrence: CN)
  Receive Date: 20240919
  Receipt Date: 20240919
  Transmission Date: 20241016
  Serious: Yes (Other)
  Sender: RANBAXY
  Company Number: CN-SUN PHARMACEUTICAL INDUSTRIES LTD-2024R1-468460

PATIENT
  Age: 64 Year
  Sex: Female

DRUGS (2)
  1. DOCETAXEL [Suspect]
     Active Substance: DOCETAXEL\DOCETAXEL ANHYDROUS
     Indication: Lung adenocarcinoma
     Dosage: 120 MILLIGRAM
     Route: 042
  2. NEDAPLATIN [Suspect]
     Active Substance: NEDAPLATIN
     Indication: Lung adenocarcinoma
     Dosage: 40 MILLIGRAM
     Route: 042

REACTIONS (2)
  - Fall [Unknown]
  - Metastasis [Unknown]
